FAERS Safety Report 23642826 (Version 5)
Quarter: 2025Q1

REPORT INFORMATION
  Report Type: Report from Study
  Country: US (occurrence: US)
  Receive Date: 20240318
  Receipt Date: 20250303
  Transmission Date: 20250408
  Serious: Yes (Other)
  Sender: MYLAN
  Company Number: US-MYLANLABS-2024M1012602

PATIENT
  Age: 58 Year
  Sex: Female

DRUGS (5)
  1. DILANTIN [Suspect]
     Active Substance: PHENYTOIN
     Indication: Epilepsy
     Dosage: 100 MILLIGRAM, BID (TAKE 2 CAPSULES BY MOUTH EVERY MORNING, AND 3 CAPS EVERY EVENING)
     Dates: start: 2008
  2. DILANTIN [Suspect]
     Active Substance: PHENYTOIN
     Indication: Seizure
  3. PHENYTOIN [Suspect]
     Active Substance: PHENYTOIN
     Indication: Epilepsy
  4. PHENYTOIN [Suspect]
     Active Substance: PHENYTOIN
     Indication: Seizure
  5. DILANTIN [Suspect]
     Active Substance: PHENYTOIN
     Indication: Product used for unknown indication

REACTIONS (8)
  - Seizure [Unknown]
  - Drug dependence [Unknown]
  - Sneezing [Unknown]
  - Memory impairment [Unknown]
  - Tremor [Unknown]
  - Treatment failure [Unknown]
  - Fatigue [Unknown]
  - Product substitution issue [Unknown]

NARRATIVE: CASE EVENT DATE: 20211201
